FAERS Safety Report 15597583 (Version 1)
Quarter: 2018Q4

REPORT INFORMATION
  Report Type: Report from Study
  Country: AR (occurrence: AR)
  Receive Date: 20181108
  Receipt Date: 20181108
  Transmission Date: 20190205
  Serious: Yes (Other)
  Sender: FDA-Public Use
  Company Number: AR-TAKEDA-2018TUS031970

PATIENT
  Age: 66 Year
  Sex: Male
  Weight: 68 kg

DRUGS (8)
  1. ATORVASTATIN [Concomitant]
     Active Substance: ATORVASTATIN
     Indication: INTERMITTENT CLAUDICATION
     Dosage: UNK
     Route: 048
     Dates: start: 20180608
  2. LORATADINE. [Concomitant]
     Active Substance: LORATADINE
     Indication: PRURITUS
     Dosage: UNK
     Route: 048
     Dates: start: 20180822
  3. DILTIAZEM. [Concomitant]
     Active Substance: DILTIAZEM
     Indication: VENTRICULAR TACHYCARDIA
     Dosage: UNK
     Route: 048
     Dates: start: 20181017
  4. PONATINIB [Suspect]
     Active Substance: PONATINIB
     Indication: CHRONIC MYELOID LEUKAEMIA
     Dosage: 45 MG, UNK
     Route: 065
     Dates: start: 20180627, end: 20180807
  5. FENOFIBRATE. [Concomitant]
     Active Substance: FENOFIBRATE
     Indication: HYPERTRIGLYCERIDAEMIA
     Dosage: UNK
     Route: 048
     Dates: start: 20180727
  6. PONATINIB [Suspect]
     Active Substance: PONATINIB
     Dosage: 45 MG, UNK
     Route: 065
     Dates: start: 20180905, end: 20181016
  7. CILOSTAZOL. [Concomitant]
     Active Substance: CILOSTAZOL
     Indication: INTERMITTENT CLAUDICATION
     Dosage: UNK
     Route: 048
     Dates: start: 20180608
  8. ENALAPRIL [Concomitant]
     Active Substance: ENALAPRIL
     Indication: HYPERTENSION
     Dosage: UNK
     Route: 048
     Dates: start: 201705

REACTIONS (1)
  - Myocardial infarction [Not Recovered/Not Resolved]

NARRATIVE: CASE EVENT DATE: 20181001
